FAERS Safety Report 13048409 (Version 1)
Quarter: 2016Q4

REPORT INFORMATION
  Report Type: Spontaneous
  Country: US (occurrence: US)
  Receive Date: 20161220
  Receipt Date: 20161220
  Transmission Date: 20170207
  Serious: Yes (Other)
  Sender: FDA-Public Use
  Company Number: None

PATIENT
  Age: 8 Year
  Sex: Male

DRUGS (1)
  1. FLAGYL [Suspect]
     Active Substance: METRONIDAZOLE\METRONIDAZOLE HYDROCHLORIDE
     Indication: VOMITING
     Dates: start: 20111229, end: 20160108

REACTIONS (4)
  - Diarrhoea [None]
  - Constipation [None]
  - Abdominal pain [None]
  - Gluten sensitivity [None]

NARRATIVE: CASE EVENT DATE: 20121230
